FAERS Safety Report 9974839 (Version 1)
Quarter: 2014Q1

REPORT INFORMATION
  Report Type: Spontaneous
  Country: US (occurrence: US)
  Receive Date: 20140306
  Receipt Date: 20140306
  Transmission Date: 20141002
  Serious: No
  Sender: FDA-Public Use
  Company Number: US-ABBVIE-13P-163-1157833-00

PATIENT
  Age: 38 Year
  Sex: Female
  Weight: 100.79 kg

DRUGS (12)
  1. HUMIRA [Suspect]
     Indication: PSORIATIC ARTHROPATHY
     Dates: start: 20130927
  2. METHOTREXATE [Concomitant]
     Indication: PSORIATIC ARTHROPATHY
  3. GABAPENTIN [Concomitant]
     Indication: FIBROMYALGIA
  4. NAPROXEN SODIUM [Concomitant]
     Indication: SWELLING
  5. NAPROXEN SODIUM [Concomitant]
     Indication: PAIN
  6. NAPROXEN SODIUM [Concomitant]
     Indication: INFLAMMATION
  7. CYCLOBENZAPRINE [Concomitant]
     Indication: MUSCLE RELAXANT THERAPY
  8. PROZAC [Concomitant]
     Indication: DEPRESSION
  9. ABILIFY [Concomitant]
     Indication: BIPOLAR DISORDER
  10. AMBIEN [Concomitant]
     Indication: INSOMNIA
  11. METFORMIN [Concomitant]
     Indication: POLYCYSTIC OVARIES
  12. SPIRONOLACTONE [Concomitant]
     Indication: HYPERTRICHOSIS

REACTIONS (1)
  - Wrong technique in drug usage process [Recovered/Resolved]
